FAERS Safety Report 9434310 (Version 1)
Quarter: 2013Q3

REPORT INFORMATION
  Report Type: Spontaneous
  Country: GB (occurrence: GB)
  Receive Date: 20130801
  Receipt Date: 20130801
  Transmission Date: 20140515
  Serious: Yes (Congenital Anomaly)
  Sender: FDA-Public Use
  Company Number: GB-ASTRAZENECA-2013SE57015

PATIENT
  Age: 1 Week
  Sex: Female
  Weight: 2.6 kg

DRUGS (2)
  1. QUETIAPINE [Suspect]
     Indication: BIPOLAR DISORDER
     Route: 064
  2. DIAZEPAM [Concomitant]

REACTIONS (2)
  - Congenital hand malformation [Unknown]
  - Arthropathy [Unknown]
